FAERS Safety Report 25986688 (Version 1)
Quarter: 2025Q4

REPORT INFORMATION
  Report Type: Spontaneous
  Country: EU (occurrence: EU)
  Receive Date: 20251101
  Receipt Date: 20251101
  Transmission Date: 20260118
  Serious: Yes (Hospitalization)
  Sender: ACCORD
  Company Number: EU-Accord-510491

PATIENT
  Age: 71 Year
  Sex: Male

DRUGS (19)
  1. PEMETREXED [Interacting]
     Active Substance: PEMETREXED
     Indication: Non-small cell lung cancer metastatic
     Dosage: EVERY 3 WEEKS
     Dates: start: 20240522, end: 202407
  2. ROSUVASTATIN CALCIUM [Interacting]
     Active Substance: ROSUVASTATIN CALCIUM
     Indication: Product used for unknown indication
  3. TADALAFIL [Interacting]
     Active Substance: TADALAFIL
     Indication: Product used for unknown indication
  4. BISOPROLOL [Interacting]
     Active Substance: BISOPROLOL
     Indication: Product used for unknown indication
  5. ASPIRIN [Interacting]
     Active Substance: ASPIRIN
     Indication: Product used for unknown indication
  6. AMLODIPINE\PERINDOPRIL [Interacting]
     Active Substance: AMLODIPINE\PERINDOPRIL
     Indication: Product used for unknown indication
  7. LANSOPRAZOLE [Interacting]
     Active Substance: LANSOPRAZOLE
     Indication: Product used for unknown indication
  8. LEUCOVORIN [Concomitant]
     Active Substance: LEUCOVORIN\LEUCOVORIN CALCIUM
  9. PEMBROLIZUMAB [Concomitant]
     Active Substance: PEMBROLIZUMAB
     Indication: Non-small cell lung cancer metastatic
     Dosage: EVERY 3 WEEKS
     Dates: start: 20240522, end: 202407
  10. PREDNISONE [Concomitant]
     Active Substance: PREDNISONE
  11. VITAMIN B12 [Concomitant]
     Active Substance: CYANOCOBALAMIN
  12. PEMBROLIZUMAB [Concomitant]
     Active Substance: PEMBROLIZUMAB
     Indication: Non-small cell lung cancer metastatic
     Dosage: EVERY 3 WEEKS
     Dates: start: 20240205, end: 20240429
  13. PEMETREXED [Interacting]
     Active Substance: PEMETREXED
     Indication: Non-small cell lung cancer metastatic
     Dosage: EVERY 3 WEEKS
     Dates: start: 20240205, end: 20240429
  14. PEMBROLIZUMAB [Concomitant]
     Active Substance: PEMBROLIZUMAB
     Indication: Metastases to adrenals
     Dosage: EVERY 3 WEEKS
     Dates: start: 20240522, end: 202407
  15. PEMETREXED [Interacting]
     Active Substance: PEMETREXED
     Indication: Metastases to adrenals
     Dosage: EVERY 3 WEEKS
     Dates: start: 20240522, end: 202407
  16. PEMBROLIZUMAB [Concomitant]
     Active Substance: PEMBROLIZUMAB
     Indication: Metastases to pleura
     Dosage: EVERY 3 WEEKS
     Dates: start: 20240522, end: 202407
  17. PEMETREXED [Interacting]
     Active Substance: PEMETREXED
     Indication: Metastases to pleura
     Dosage: EVERY 3 WEEKS
     Dates: start: 20240522, end: 202407
  18. PEMBROLIZUMAB [Concomitant]
     Active Substance: PEMBROLIZUMAB
     Indication: Metastases to lymph nodes
     Dosage: EVERY 3 WEEKS
     Dates: start: 20240522, end: 202407
  19. PEMETREXED [Interacting]
     Active Substance: PEMETREXED
     Indication: Metastases to lymph nodes
     Dosage: EVERY 3 WEEKS
     Dates: start: 20240522, end: 202407

REACTIONS (2)
  - Pseudocellulitis [Recovered/Resolved]
  - Drug interaction [Unknown]

NARRATIVE: CASE EVENT DATE: 20240101
